FAERS Safety Report 5135289-7 (Version None)
Quarter: 2006Q4

REPORT INFORMATION
  Report Type: 
  Country: None (occurrence: None)
  Receive Date: 20061024
  Receipt Date: 20061024
  Transmission Date: 20070319
  Serious: Yes (Life-Threatening, Hospitalization)
  Sender: FDA-Public Use
  Company Number: None

PATIENT
  Sex: Male

DRUGS (14)
  1. TICARCILLIN-CLAVULANATE [Suspect]
     Indication: COLITIS
     Dosage: 3.1 GM   Q 12 HR    IV
     Route: 042
     Dates: start: 20060924, end: 20060927
  2. COMBIVENT [Concomitant]
  3. AMLODIPINE [Concomitant]
  4. ISOSORBIDE MONONITRATE [Concomitant]
  5. LISINOPRIL [Concomitant]
  6. METOPROLOL TARTRATE [Concomitant]
  7. MOMETASONE INHALER [Concomitant]
  8. MORPHINE [Concomitant]
  9. NORTRIPTYLINE HCL [Concomitant]
  10. OMEPRAZOLE [Concomitant]
  11. ONDANSETRON [Concomitant]
  12. QUININE SULFATE [Concomitant]
  13. SERTRALINE [Concomitant]
  14. SIMVASTATIN [Concomitant]

REACTIONS (2)
  - PLATELET COUNT DECREASED [None]
  - WHITE BLOOD CELL COUNT DECREASED [None]
